FAERS Safety Report 16194694 (Version 1)
Quarter: 2019Q2

REPORT INFORMATION
  Report Type: Spontaneous
  Country: DZ (occurrence: DZ)
  Receive Date: 20190414
  Receipt Date: 20190414
  Transmission Date: 20190711
  Serious: Yes (Death, Other)
  Sender: FDA-Public Use
  Company Number: DZ-BIOVITRUM-2019DZ0680

PATIENT
  Age: 11 Month
  Sex: Female

DRUGS (2)
  1. ORFADIN [Suspect]
     Active Substance: NITISINONE
     Indication: TYROSINAEMIA
     Dosage: 2 MG/KG/DAY
     Dates: end: 20190328
  2. ORFADIN [Suspect]
     Active Substance: NITISINONE
     Dosage: 1 MG/KG/DAY
     Dates: start: 20190124

REACTIONS (3)
  - Tyrosinaemia [Fatal]
  - Condition aggravated [Fatal]
  - Hepatic mass [Unknown]
